FAERS Safety Report 21473695 (Version 1)
Quarter: 2022Q4

REPORT INFORMATION
  Report Type: Report from Study
  Country: US (occurrence: US)
  Receive Date: 20221018
  Receipt Date: 20221018
  Transmission Date: 20230113
  Serious: No
  Sender: FDA-Public Use
  Company Number: US-ABBVIE-4166053

PATIENT
  Sex: Male

DRUGS (1)
  1. VENCLEXTA [Suspect]
     Active Substance: VENETOCLAX
     Indication: Diabetes mellitus
     Dosage: TAKE 2 TABLETS BY MOUTH?DAILY FOR 14 DAYS OF A 28 DAY CYCLE
     Route: 048

REACTIONS (1)
  - Drug ineffective [Unknown]
